FAERS Safety Report 23863561 (Version 1)
Quarter: 2024Q2

REPORT INFORMATION
  Report Type: Spontaneous
  Country: CZ (occurrence: CZ)
  Receive Date: 20240516
  Receipt Date: 20240516
  Transmission Date: 20240716
  Serious: Yes (Other)
  Sender: FDA-Public Use
  Company Number: CZ-009507513-2405CZE002853

PATIENT
  Age: 26 Year
  Sex: Female
  Weight: 95 kg

DRUGS (3)
  1. LAGEVRIO [Suspect]
     Active Substance: MOLNUPIRAVIR
     Indication: COVID-19
     Dosage: UNK
     Dates: start: 20231214, end: 20231218
  2. AZITHROMYCIN [Suspect]
     Active Substance: AZITHROMYCIN
     Indication: Cough
     Dosage: UNK
     Dates: start: 20231222, end: 20231228
  3. AZITHROMYCIN [Suspect]
     Active Substance: AZITHROMYCIN
     Indication: COVID-19

REACTIONS (2)
  - Foetal death [Recovered/Resolved]
  - Maternal exposure during pregnancy [Recovered/Resolved]

NARRATIVE: CASE EVENT DATE: 20240411
